FAERS Safety Report 9605125 (Version 5)
Quarter: 2013Q4

REPORT INFORMATION
  Report Type: Report from Study
  Country: JP (occurrence: JP)
  Receive Date: 20131008
  Receipt Date: 20131122
  Transmission Date: 20140711
  Serious: Yes (Hospitalization, Other)
  Sender: FDA-Public Use
  Company Number: JP-B.I. PHARMACEUTICALS,INC./RIDGEFIELD-2013-BI-30803BI

PATIENT
  Age: 67 Year
  Sex: Male
  Weight: 81.5 kg

DRUGS (11)
  1. TELMISARTAN + HYDROCHLOROTHIAZIDE [Suspect]
     Indication: HYPERTENSION
     Dosage: STRENGTH: T80MG+H12.5MG, DAILY DOSE : T80MG+H12.5MG
     Route: 048
     Dates: start: 20130824, end: 20130927
  2. TRIAL PROCEDURE [Suspect]
     Indication: HYPERTENSION
  3. GLACTIV [Concomitant]
     Indication: TYPE 2 DIABETES MELLITUS
     Dosage: 50 MG
     Route: 048
     Dates: start: 20110808
  4. AMARYL [Concomitant]
     Indication: TYPE 2 DIABETES MELLITUS
     Dosage: 1 MG
     Route: 048
     Dates: start: 20130629
  5. METGLUCO [Concomitant]
     Indication: TYPE 2 DIABETES MELLITUS
     Dosage: 750 MG
     Route: 048
     Dates: start: 20130629
  6. LIVALO TAB 2 MG [Concomitant]
     Indication: DYSLIPIDAEMIA
     Dosage: 2 MG
     Route: 048
     Dates: start: 20121229, end: 20130923
  7. LOXONIN PAP 100 MG [Concomitant]
     Indication: MYALGIA
     Dosage: DAILY DOSE: 1 PIECE
     Route: 061
     Dates: start: 20110530
  8. LOXONIN [Concomitant]
     Indication: MYALGIA
     Dosage: 60 MG
     Route: 048
     Dates: start: 201306
  9. LOXONIN [Concomitant]
     Indication: PERIARTHRITIS
  10. LOXONIN [Concomitant]
     Indication: SPINAL OSTEOARTHRITIS
  11. MUCOSTA [Concomitant]
     Indication: GASTRITIS PROPHYLAXIS
     Dosage: 100 MG
     Route: 048
     Dates: start: 20130914

REACTIONS (2)
  - Lacunar infarction [Not Recovered/Not Resolved]
  - Blood pressure increased [Recovered/Resolved]
